FAERS Safety Report 9850741 (Version 4)
Quarter: 2014Q1

REPORT INFORMATION
  Report Type: Spontaneous
  Country: IT (occurrence: IT)
  Receive Date: 20140128
  Receipt Date: 20140220
  Transmission Date: 20141002
  Serious: Yes (Hospitalization)
  Sender: FDA-Public Use
  Company Number: IT-PFIZER INC-2013151858

PATIENT
  Age: 28 Year
  Sex: Female

DRUGS (3)
  1. TAZOCIN [Suspect]
     Indication: ABSCESS NECK
     Dosage: 13.5 MG, DAILY
     Route: 042
     Dates: start: 20130427, end: 20130514
  2. AMOXYCILLIN/CLAVULANIC ACID [Concomitant]
     Indication: ABSCESS NECK
     Dosage: UNK
     Dates: start: 20130424, end: 20130427
  3. METRONIDAZOLE [Concomitant]
     Indication: ABSCESS NECK
     Dosage: UNK
     Dates: start: 20130424, end: 20130427

REACTIONS (3)
  - Leukopenia [Recovered/Resolved]
  - Neutropenia [Recovered/Resolved]
  - Bone marrow toxicity [Recovered/Resolved]
